FAERS Safety Report 9436198 (Version 1)
Quarter: 2013Q3

REPORT INFORMATION
  Report Type: Spontaneous
  Country: US (occurrence: US)
  Receive Date: 20130801
  Receipt Date: 20130801
  Transmission Date: 20140515
  Serious: Yes (Other)
  Sender: FDA-Public Use
  Company Number: US-TMC-CABO-13003056

PATIENT
  Sex: Male

DRUGS (13)
  1. COMETRIQ [Suspect]
     Indication: THYROID CANCER
     Dosage: 140 MG, QD
     Route: 048
     Dates: start: 20130626, end: 20130705
  2. COMETRIQ [Suspect]
     Dosage: 140 MG, QD
     Route: 048
     Dates: start: 20130729
  3. ASPIRIN [Concomitant]
  4. CALCITRIOL [Concomitant]
  5. CALCIUM CARBONATE [Concomitant]
  6. FLEXERIL [Concomitant]
  7. COLACE [Concomitant]
  8. DILAUDID [Concomitant]
  9. LEVOTHYROXINE [Concomitant]
  10. COMPAZINE [Concomitant]
  11. ZOCOR [Concomitant]
  12. ULTRAM [Concomitant]
  13. IBUPROFEN [Concomitant]

REACTIONS (4)
  - Anaemia [Unknown]
  - Blood calcium decreased [Unknown]
  - Rash [Recovered/Resolved]
  - Stomatitis [Recovered/Resolved]
